FAERS Safety Report 11614071 (Version 1)
Quarter: 2015Q4

REPORT INFORMATION
  Report Type: Spontaneous
  Country: US (occurrence: US)
  Receive Date: 20151008
  Receipt Date: 20151008
  Transmission Date: 20160304
  Serious: Yes (Hospitalization)
  Sender: FDA-Public Use
  Company Number: US-ASTRAZENECA-2015SE94752

PATIENT
  Age: 16838 Day
  Sex: Female

DRUGS (3)
  1. BRILINTA [Suspect]
     Active Substance: TICAGRELOR
     Indication: THROMBOSIS PROPHYLAXIS
     Route: 048
     Dates: start: 20150916
  2. BABY ASPIRIN [Concomitant]
     Active Substance: ASPIRIN
  3. PRAVACHOL [Concomitant]
     Active Substance: PRAVASTATIN SODIUM

REACTIONS (3)
  - Acute myocardial infarction [Unknown]
  - Intentional product misuse [Unknown]
  - Vascular stent thrombosis [Unknown]

NARRATIVE: CASE EVENT DATE: 20150917
